FAERS Safety Report 24764707 (Version 1)
Quarter: 2024Q4

REPORT INFORMATION
  Report Type: Spontaneous
  Country: US (occurrence: US)
  Receive Date: 20241223
  Receipt Date: 20241223
  Transmission Date: 20250115
  Serious: Yes (Death, Other)
  Sender: AMGEN
  Company Number: US-AMGEN-USASP2024247085

PATIENT

DRUGS (3)
  1. PREDNISONE [Suspect]
     Active Substance: PREDNISONE
     Indication: Acute graft versus host disease
     Dosage: UNK
     Route: 065
  2. CYCLOPHOSPHAMIDE [Suspect]
     Active Substance: CYCLOPHOSPHAMIDE
     Indication: Prophylaxis
     Dosage: UNK
     Route: 065
  3. BORTEZOMIB [Suspect]
     Active Substance: BORTEZOMIB
     Indication: Prophylaxis
     Dosage: UNK
     Route: 065

REACTIONS (14)
  - Plasma cell myeloma [Fatal]
  - Chronic graft versus host disease in liver [Unknown]
  - Gastric ulcer [Unknown]
  - Rectal ulcer [Unknown]
  - Cytomegalovirus infection reactivation [Unknown]
  - Haematuria [Unknown]
  - Cerebral toxoplasmosis [Unknown]
  - Pneumonia respiratory syncytial viral [Fatal]
  - Sepsis [Fatal]
  - Weight decreased [Unknown]
  - Decreased appetite [Unknown]
  - Genital ulceration [Unknown]
  - Herpes simplex [Unknown]
  - BK virus infection [Unknown]
